FAERS Safety Report 19065319 (Version 4)
Quarter: 2021Q3

REPORT INFORMATION
  Report Type: Report from Study
  Country: None (occurrence: US)
  Receive Date: 20210327
  Receipt Date: 20210823
  Transmission Date: 20211014
  Serious: Yes (Hospitalization, Other)
  Sender: FDA-Public Use
  Company Number: US-ABBVIE-21K-163-3831249-00

PATIENT
  Age: 56 Year
  Sex: Female

DRUGS (5)
  1. INSULIN [Concomitant]
     Active Substance: INSULIN NOS
     Indication: TYPE 2 DIABETES MELLITUS
  2. REPATHA [Concomitant]
     Active Substance: EVOLOCUMAB
     Indication: BLOOD CHOLESTEROL INCREASED
  3. SKYRIZI [Suspect]
     Active Substance: RISANKIZUMAB-RZAA
     Indication: PSORIASIS
     Route: 058
     Dates: start: 2019
  4. SKYRIZI [Suspect]
     Active Substance: RISANKIZUMAB-RZAA
     Indication: PSORIATIC ARTHROPATHY
  5. COVID?19 VACCINE [Concomitant]
     Indication: COVID-19 IMMUNISATION
     Dosage: JOHNSON AND JOHNSON
     Route: 030
     Dates: start: 202104, end: 202104

REACTIONS (6)
  - Off label use [Unknown]
  - Cerebrovascular accident [Recovered/Resolved]
  - Cerebrovascular accident [Recovering/Resolving]
  - Skin disorder [Not Recovered/Not Resolved]
  - Chronic kidney disease [Recovering/Resolving]
  - Amnesia [Recovering/Resolving]

NARRATIVE: CASE EVENT DATE: 2020
